FAERS Safety Report 5225464-5 (Version None)
Quarter: 2007Q1

REPORT INFORMATION
  Report Type: 
  Country: None (occurrence: None)
  Receive Date: 20070131
  Receipt Date: 20070123
  Transmission Date: 20070707
  Serious: Yes (Hospitalization, Other)
  Sender: FDA-Public Use
  Company Number: US-PFIZER INC-2006145694

PATIENT
  Sex: Female
  Weight: 52.2 kg

DRUGS (9)
  1. XANAX [Suspect]
     Dosage: TEXT:UNKNOWN
  2. NEURONTIN [Suspect]
     Dosage: DAILY DOSE:2400MG
  3. GABITRIL [Interacting]
     Indication: TEMPORAL LOBE EPILEPSY
     Dosage: TEXT:UNKNOWN
     Route: 048
     Dates: start: 20031101, end: 20040101
  4. GABITRIL [Interacting]
     Indication: PSYCHOGENIC PAIN DISORDER
  5. ADDERALL 10 [Interacting]
     Route: 048
  6. LEXAPRO [Suspect]
  7. SYNTHROID [Concomitant]
  8. KEPPRA [Concomitant]
  9. REMERON [Concomitant]

REACTIONS (23)
  - AGITATION [None]
  - ANTEROGRADE AMNESIA [None]
  - ANXIETY [None]
  - CONFUSIONAL STATE [None]
  - CONVULSION [None]
  - DELIRIUM [None]
  - DEPRESSION [None]
  - DRUG INTERACTION [None]
  - FALL [None]
  - ILL-DEFINED DISORDER [None]
  - INTENTIONAL OVERDOSE [None]
  - IRRITABILITY [None]
  - JAMAIS VU [None]
  - LETHARGY [None]
  - NERVOUS SYSTEM DISORDER [None]
  - PAIN [None]
  - POST-TRAUMATIC STRESS DISORDER [None]
  - PSYCHOTIC DISORDER [None]
  - RETROGRADE AMNESIA [None]
  - SCAR [None]
  - SPEECH DISORDER [None]
  - SUICIDAL IDEATION [None]
  - VITREOUS FLOATERS [None]
